FAERS Safety Report 7664042-5 (Version None)
Quarter: 2011Q3

REPORT INFORMATION
  Report Type: 
  Country: None (occurrence: None)
  Receive Date: 20110805
  Receipt Date: 20100805
  Transmission Date: 20111222
  Serious: No
  Sender: FDA-Public Use
  Company Number: US-ABBOTT-10P-163-0661598-00

PATIENT
  Sex: Female

DRUGS (4)
  1. ANTI-INFLAMMATORY MEDICATION [Concomitant]
     Indication: PRODUCT USED FOR UNKNOWN INDICATION
  2. UNKNOWN MIGRAINE MEDICATION [Concomitant]
     Indication: PRODUCT USED FOR UNKNOWN INDICATION
  3. NIASPAN [Suspect]
     Indication: DYSLIPIDAEMIA
     Dosage: DAILY DOSE: 500MG AT BEDTIME
     Route: 048
     Dates: start: 20100727
  4. UNKNOWN ANTI-HYPERTENSIVE MEDICATION [Concomitant]
     Indication: PRODUCT USED FOR UNKNOWN INDICATION

REACTIONS (6)
  - SLEEP DISORDER [None]
  - MIGRAINE [None]
  - PALPITATIONS [None]
  - SKIN BURNING SENSATION [None]
  - BLOOD PRESSURE ABNORMAL [None]
  - FLUSHING [None]
